FAERS Safety Report 18746368 (Version 1)
Quarter: 2021Q1

REPORT INFORMATION
  Report Type: Spontaneous
  Country: US (occurrence: US)
  Receive Date: 20210115
  Receipt Date: 20210115
  Transmission Date: 20210419
  Serious: No
  Sender: FDA-Public Use
  Company Number: US-SA-2021SA008394

PATIENT
  Age: 29 Year
  Sex: Female

DRUGS (1)
  1. ALDURAZYME [Suspect]
     Active Substance: LARONIDASE
     Dosage: UNK UNK, QW
     Route: 041

REACTIONS (2)
  - Flushing [Unknown]
  - Hot flush [Unknown]

NARRATIVE: CASE EVENT DATE: 20201222
